FAERS Safety Report 9749342 (Version 1)
Quarter: 2013Q4

REPORT INFORMATION
  Report Type: Spontaneous
  Country: CN (occurrence: None)
  Receive Date: 20131209
  Receipt Date: 20131209
  Transmission Date: 20140711
  Serious: Yes (Hospitalization)
  Sender: FDA-Public Use
  Company Number: 2013P1021582

PATIENT
  Age: 41 Year
  Sex: Male

DRUGS (1)
  1. VALPROATE SODIUM [Suspect]
     Indication: EPILEPSY
     Route: 048

REACTIONS (4)
  - Hypofibrinogenaemia [None]
  - Haemorrhage intracranial [None]
  - VIIth nerve paralysis [None]
  - Post procedural haematoma [None]
